FAERS Safety Report 11783416 (Version 2)
Quarter: 2015Q4

REPORT INFORMATION
  Report Type: Spontaneous
  Country: PL (occurrence: PL)
  Receive Date: 20151127
  Receipt Date: 20151228
  Transmission Date: 20160305
  Serious: Yes (Other)
  Sender: FDA-Public Use
  Company Number: PL-AMGEN-POLSP2015125211

PATIENT
  Age: 60 Year
  Sex: Male

DRUGS (6)
  1. ALDOSTERONE ANTAGONISTS [Concomitant]
     Dosage: UNK
  2. ACE INHIBITORS [Concomitant]
     Active Substance: UNSPECIFIED INGREDIENT
     Dosage: UNK
  3. PROCORALAN [Suspect]
     Active Substance: IVABRADINE
     Indication: CARDIAC FAILURE
     Dosage: 5 MG, BID
     Route: 048
     Dates: start: 201505, end: 201509
  4. BETA BLOCKING AGENTS [Concomitant]
     Active Substance: UNSPECIFIED INGREDIENT
     Dosage: UNK
  5. ACETYLSALICYLIC ACID [Concomitant]
     Active Substance: ASPIRIN
     Dosage: UNK
  6. ATORVASTATIN CALCIUM. [Concomitant]
     Active Substance: ATORVASTATIN CALCIUM
     Dosage: UNK

REACTIONS (2)
  - Ventricular extrasystoles [Recovered/Resolved]
  - Dyspnoea [Recovered/Resolved]

NARRATIVE: CASE EVENT DATE: 201507
